FAERS Safety Report 5277793-7 (Version None)
Quarter: 2007Q1

REPORT INFORMATION
  Report Type: 
  Country: None (occurrence: None)
  Receive Date: 20070327
  Receipt Date: 20070313
  Transmission Date: 20070707
  Serious: Yes (Other)
  Sender: FDA-Public Use
  Company Number: US-ELI_LILLY_AND_COMPANY-US200703002718

PATIENT
  Sex: Female

DRUGS (2)
  1. EVISTA [Suspect]
     Route: 048
     Dates: start: 19940101, end: 19940101
  2. EVISTA [Suspect]
     Dosage: UNK, UNK
     Route: 048
     Dates: start: 20070306

REACTIONS (3)
  - BREAST CYST [None]
  - BREAST SWELLING [None]
  - BREAST TENDERNESS [None]
